FAERS Safety Report 7546811-5 (Version None)
Quarter: 2011Q2

REPORT INFORMATION
  Report Type: 
  Country: None (occurrence: None)
  Receive Date: 20110614
  Receipt Date: 20110609
  Transmission Date: 20111010
  Serious: Yes (Other)
  Sender: FDA-Public Use
  Company Number: DE-ROCHE-775723

PATIENT
  Sex: Female

DRUGS (2)
  1. OMEPRAZOLE [Concomitant]
     Indication: ULCER
  2. BONIVA [Suspect]
     Indication: OSTEOPOROSIS
     Route: 042
     Dates: start: 20110301, end: 20110304

REACTIONS (4)
  - LIP SWELLING [None]
  - BONE PAIN [None]
  - OEDEMA PERIPHERAL [None]
  - SWOLLEN TONGUE [None]
